FAERS Safety Report 5629588-X (Version None)
Quarter: 2008Q1

REPORT INFORMATION
  Report Type: 
  Country: None (occurrence: None)
  Receive Date: 20080218
  Receipt Date: 20080207
  Transmission Date: 20080703
  Serious: Yes (Death)
  Sender: FDA-Public Use
  Company Number: GB-AMGEN-US265001

PATIENT
  Age: 69 Year
  Sex: Female

DRUGS (5)
  1. ENBREL [Suspect]
     Indication: RHEUMATOID ARTHRITIS
     Dosage: 50MG, FREQUENCY UNKNOWN
     Route: 058
     Dates: start: 20070928
  2. PREDNISOLONE [Concomitant]
     Indication: RHEUMATOID ARTHRITIS
     Dosage: 7.5MG, FREQUENCY UNKNOWN
     Route: 048
     Dates: start: 20060101
  3. OMEPRAZOLE [Concomitant]
     Dosage: 20 MG, FREQUENCY UNKNOWN
     Route: 048
  4. DICLOFENAC SODIUM [Concomitant]
     Route: 048
  5. METHOTREXATE [Concomitant]
     Indication: RHEUMATOID ARTHRITIS
     Route: 048
     Dates: start: 20060101

REACTIONS (2)
  - CARDIO-RESPIRATORY ARREST [None]
  - PULMONARY SEPSIS [None]
